FAERS Safety Report 22003753 (Version 2)
Quarter: 2023Q2

REPORT INFORMATION
  Report Type: Report from Study
  Country: CN (occurrence: CN)
  Receive Date: 20230217
  Receipt Date: 20230622
  Transmission Date: 20230722
  Serious: Yes (Hospitalization)
  Sender: FDA-Public Use
  Company Number: CN-JNJFOC-20230227919

PATIENT
  Age: 80 Year
  Sex: Male
  Weight: 61 kg

DRUGS (7)
  1. APALUTAMIDE [Suspect]
     Active Substance: APALUTAMIDE
     Indication: Hormone-refractory prostate cancer
     Dosage: MOST RECENT DOSE 16-JAN-2023; MED KIT NO 110-0341
     Route: 048
     Dates: start: 20200731
  2. BENAZEPRIL [Concomitant]
     Active Substance: BENAZEPRIL HYDROCHLORIDE
     Indication: Hypertension
     Route: 048
     Dates: start: 2000
  3. CANDESARTAN [Concomitant]
     Active Substance: CANDESARTAN
     Indication: Hypertension
     Route: 048
  4. METOPROLOL [Concomitant]
     Active Substance: METOPROLOL
     Indication: Hypertension
     Route: 030
     Dates: start: 20200923
  5. ATORVASTATIN [Concomitant]
     Active Substance: ATORVASTATIN
     Indication: Hepatic steatosis
     Route: 048
     Dates: start: 201911
  6. SIMVASTATIN [Concomitant]
     Active Substance: SIMVASTATIN
     Indication: Cardiac pacemaker insertion
     Route: 048
     Dates: start: 20230106
  7. SIMVASTATIN [Concomitant]
     Active Substance: SIMVASTATIN
     Indication: Anticoagulant therapy

REACTIONS (2)
  - Osteoporosis [Recovering/Resolving]
  - Thoracic vertebral fracture [Recovering/Resolving]

NARRATIVE: CASE EVENT DATE: 20230114
